FAERS Safety Report 18425614 (Version 1)
Quarter: 2020Q4

REPORT INFORMATION
  Report Type: Spontaneous
  Country: US (occurrence: US)
  Receive Date: 20201026
  Receipt Date: 20201026
  Transmission Date: 20210114
  Serious: Yes (Hospitalization)
  Sender: FDA-Public Use
  Company Number: None

PATIENT
  Sex: Male
  Weight: 14.03 kg

DRUGS (5)
  1. ONCASPAR [Concomitant]
     Active Substance: PEGASPARGASE
  2. VINCRISTINE SULFATE. [Concomitant]
     Active Substance: VINCRISTINE SULFATE
  3. CYCLOPHOSPHAMIDE. [Suspect]
     Active Substance: CYCLOPHOSPHAMIDE
  4. METHOTREXATE. [Concomitant]
     Active Substance: METHOTREXATE
  5. CYTARABINE. [Concomitant]
     Active Substance: CYTARABINE

REACTIONS (5)
  - Mucosal inflammation [None]
  - C-reactive protein increased [None]
  - Lip ulceration [None]
  - Pyrexia [None]
  - Procalcitonin increased [None]

NARRATIVE: CASE EVENT DATE: 20201007
